FAERS Safety Report 9839790 (Version 2)
Quarter: 2014Q1

REPORT INFORMATION
  Report Type: Spontaneous
  Country: US (occurrence: US)
  Receive Date: 20140124
  Receipt Date: 20140303
  Transmission Date: 20141002
  Serious: No
  Sender: FDA-Public Use
  Company Number: US-BIOGENIDEC-2014BI006247

PATIENT
  Age: 66 Year
  Sex: Female

DRUGS (6)
  1. TECFIDERA [Suspect]
     Indication: MULTIPLE SCLEROSIS
     Route: 048
  2. AMPYRA [Concomitant]
  3. CALCIUM CARBONATE [Concomitant]
  4. HYDROCODONE BITARTRATE [Concomitant]
  5. LISINOPRIL [Concomitant]
  6. LOMOTIL [Concomitant]

REACTIONS (2)
  - Vision blurred [Unknown]
  - Diarrhoea [Unknown]
